FAERS Safety Report 5603782-6 (Version None)
Quarter: 2008Q1

REPORT INFORMATION
  Report Type: 
  Country: None (occurrence: None)
  Receive Date: 20080122
  Receipt Date: 20080109
  Transmission Date: 20080703
  Serious: Yes (Hospitalization)
  Sender: FDA-Public Use
  Company Number: 2008SP000053

PATIENT
  Age: 23 Month
  Sex: Female
  Weight: 8.6183 kg

DRUGS (3)
  1. XOPENEX [Suspect]
     Indication: PNEUMONIA
     Dosage: 1.25 MG/3ML, Q3H; INHALATION; 1.25 MG/3ML; INHALATION
     Route: 055
     Dates: start: 20080101, end: 20080104
  2. XOPENEX [Suspect]
     Indication: PNEUMONIA
     Dosage: 1.25 MG/3ML, Q3H; INHALATION; 1.25 MG/3ML; INHALATION
     Route: 055
     Dates: start: 20080104
  3. PULMICORT [Suspect]
     Indication: PNEUMONIA
     Dosage: BID; INHALATION
     Route: 055
     Dates: start: 20080101

REACTIONS (3)
  - HEART RATE IRREGULAR [None]
  - OXYGEN SATURATION DECREASED [None]
  - PALLOR [None]
